FAERS Safety Report 11030989 (Version 1)
Quarter: 2015Q2

REPORT INFORMATION
  Report Type: Spontaneous
  Country: US (occurrence: None)
  Receive Date: 20150414
  Receipt Date: 20150414
  Transmission Date: 20150821
  Serious: Yes (Disabling, Other)
  Sender: FDA-Public Use
  Company Number: None

PATIENT
  Age: 25 Year
  Sex: Female
  Weight: 58.97 kg

DRUGS (3)
  1. BACTRIM DS [Suspect]
     Active Substance: SULFAMETHOXAZOLE\TRIMETHOPRIM
     Indication: LYMPHADENOPATHY
     Dosage: SMZ/TMP DS, TWICE DAILY, TAKEN BY MOUTH
     Route: 048
     Dates: start: 20130325, end: 20130326
  2. SERTRALINE [Concomitant]
     Active Substance: SERTRALINE HYDROCHLORIDE
  3. BACTRIM DS [Suspect]
     Active Substance: SULFAMETHOXAZOLE\TRIMETHOPRIM
     Indication: INFECTION
     Dosage: SMZ/TMP DS, TWICE DAILY, TAKEN BY MOUTH
     Route: 048
     Dates: start: 20130325, end: 20130326

REACTIONS (10)
  - Nausea [None]
  - Family stress [None]
  - Headache [None]
  - Pain [None]
  - Night sweats [None]
  - Pyrexia [None]
  - Lethargy [None]
  - Impaired work ability [None]
  - Movement disorder [None]
  - General physical health deterioration [None]

NARRATIVE: CASE EVENT DATE: 20130325
